FAERS Safety Report 13824154 (Version 1)
Quarter: 2017Q3

REPORT INFORMATION
  Report Type: Report from Study
  Country: FR (occurrence: FR)
  Receive Date: 20170802
  Receipt Date: 20170802
  Transmission Date: 20171127
  Serious: Yes (Other)
  Sender: FDA-Public Use
  Company Number: FR-ROCHE-1798974

PATIENT
  Age: 53 Year
  Sex: Female

DRUGS (1)
  1. TRASTUZUMAB. [Suspect]
     Active Substance: TRASTUZUMAB
     Indication: HER-2 POSITIVE BREAST CANCER
     Route: 058
     Dates: start: 20150909

REACTIONS (6)
  - Hypertension [Unknown]
  - Myocardial ischaemia [Not Recovered/Not Resolved]
  - Dyspnoea [Unknown]
  - Mitral valve incompetence [Unknown]
  - Left ventricular dysfunction [Not Recovered/Not Resolved]
  - Aortic disorder [Unknown]

NARRATIVE: CASE EVENT DATE: 20160113
